FAERS Safety Report 5941903-6 (Version None)
Quarter: 2008Q4

REPORT INFORMATION
  Report Type: 
  Country: None (occurrence: None)
  Receive Date: 20081105
  Receipt Date: 20081104
  Transmission Date: 20090506
  Serious: Yes (Hospitalization, Other)
  Sender: FDA-Public Use
  Company Number: JP-BRISTOL-MYERS SQUIBB COMPANY-14388458

PATIENT
  Age: 77 Year
  Sex: Male

DRUGS (2)
  1. TAXOL [Suspect]
     Indication: NON-SMALL CELL LUNG CANCER
     Route: 041
     Dates: start: 20080917, end: 20080917
  2. PARAPLATIN [Suspect]
     Indication: NON-SMALL CELL LUNG CANCER
     Route: 041
     Dates: start: 20080917, end: 20080917

REACTIONS (3)
  - ARTHRALGIA [None]
  - GAIT DISTURBANCE [None]
  - NEUROPATHY PERIPHERAL [None]
